FAERS Safety Report 5644851-4 (Version None)
Quarter: 2008Q1

REPORT INFORMATION
  Report Type: 
  Country: None (occurrence: None)
  Receive Date: 20080229
  Receipt Date: 20070913
  Transmission Date: 20080703
  Serious: No
  Sender: FDA-Public Use
  Company Number: A0681849A

PATIENT
  Age: 48 Year
  Sex: Female

DRUGS (10)
  1. VALTREX [Suspect]
     Indication: GENITAL HERPES
     Dosage: 500MG PER DAY
     Route: 048
     Dates: start: 20070909
  2. COREG [Concomitant]
  3. METFORMIN HCL [Concomitant]
  4. INSULIN [Concomitant]
  5. POTASSIUM CHLORIDE [Concomitant]
  6. ASPIRIN [Concomitant]
  7. PAXIL [Concomitant]
     Dates: start: 19980101
  8. LASIX [Concomitant]
  9. ENALAPRIL MALEATE [Concomitant]
  10. RAPTIVA [Concomitant]

REACTIONS (5)
  - DRUG INEFFECTIVE [None]
  - ILL-DEFINED DISORDER [None]
  - PAIN [None]
  - PRURITUS [None]
  - SWELLING [None]
